FAERS Safety Report 25238171 (Version 2)
Quarter: 2025Q3

REPORT INFORMATION
  Report Type: Report from Study
  Country: US (occurrence: US)
  Receive Date: 20250425
  Receipt Date: 20250809
  Transmission Date: 20251021
  Serious: Yes (Other)
  Sender: ALEXION PHARMACEUTICALS
  Company Number: US-AstraZeneca-CH-00852505A

PATIENT
  Sex: Female

DRUGS (1)
  1. BENRALIZUMAB [Suspect]
     Active Substance: BENRALIZUMAB
     Route: 065

REACTIONS (7)
  - Feeling abnormal [Unknown]
  - Fatigue [Unknown]
  - White blood cell count increased [Unknown]
  - Autoimmune disorder [Unknown]
  - Antinuclear antibody increased [Unknown]
  - Inflammation [Unknown]
  - Migraine [Unknown]
